FAERS Safety Report 20670548 (Version 2)
Quarter: 2022Q4

REPORT INFORMATION
  Report Type: Report from Study
  Country: PA (occurrence: PA)
  Receive Date: 20220404
  Receipt Date: 20221027
  Transmission Date: 20230112
  Serious: Yes (Other)
  Sender: FDA-Public Use
  Company Number: PA-NOVARTISPH-NVSC2022PA070734

PATIENT
  Age: 57 Year
  Sex: Female

DRUGS (4)
  1. KISQALI [Suspect]
     Active Substance: RIBOCICLIB
     Indication: Breast cancer metastatic
     Dosage: 600 MG, QD (3 (600 MG)
     Route: 048
     Dates: start: 202007
  2. KISQALI [Suspect]
     Active Substance: RIBOCICLIB
     Dosage: 400 MG, QD
     Route: 048
     Dates: start: 202007
  3. KISQALI [Suspect]
     Active Substance: RIBOCICLIB
     Dosage: 3 TABLETS QD
     Route: 065
  4. FULVESTRANT [Suspect]
     Active Substance: FULVESTRANT
     Indication: Product used for unknown indication
     Route: 065

REACTIONS (6)
  - Metastasis [Unknown]
  - Arrhythmia [Unknown]
  - Heart rate abnormal [Unknown]
  - Hypertension [Unknown]
  - Decreased immune responsiveness [Unknown]
  - Insomnia [Unknown]

NARRATIVE: CASE EVENT DATE: 20221021
